FAERS Safety Report 19577939 (Version 1)
Quarter: 2021Q3

REPORT INFORMATION
  Report Type: Spontaneous
  Country: HR (occurrence: HR)
  Receive Date: 20210719
  Receipt Date: 20210719
  Transmission Date: 20211014
  Serious: Yes (Other)
  Sender: FDA-Public Use
  Company Number: HR-FRESENIUS KABI-FK202107451

PATIENT
  Age: 36 Year
  Sex: Male

DRUGS (1)
  1. VANCOMYCIN (MANUFACTURER UNKNOWN) [Suspect]
     Active Substance: VANCOMYCIN
     Indication: PNEUMONIA PNEUMOCOCCAL
     Route: 065

REACTIONS (1)
  - Acute kidney injury [Recovered/Resolved]
